FAERS Safety Report 18124788 (Version 1)
Quarter: 2020Q3

REPORT INFORMATION
  Report Type: Spontaneous
  Country: IT (occurrence: IT)
  Receive Date: 20200807
  Receipt Date: 20200807
  Transmission Date: 20201103
  Serious: Yes (Hospitalization)
  Sender: FDA-Public Use
  Company Number: IT-SA-2020SA205125

PATIENT

DRUGS (3)
  1. ETHAMBUTOL [Interacting]
     Active Substance: ETHAMBUTOL HYDROCHLORIDE
     Indication: TUBERCULOSIS
     Dosage: 3 DF, QCY
     Route: 048
     Dates: start: 20200618, end: 20200623
  2. PYRAZINAMIDE. [Interacting]
     Active Substance: PYRAZINAMIDE
     Indication: TUBERCULOSIS
     Dosage: 3 DF, QCY
     Route: 048
     Dates: start: 20200618, end: 20200623
  3. RIFINAH [Suspect]
     Active Substance: ISONIAZID\RIFAMPIN
     Indication: TUBERCULOSIS
     Dosage: 2 DF, QD
     Route: 048
     Dates: start: 20200618, end: 20200623

REACTIONS (3)
  - Sopor [Recovering/Resolving]
  - Drug interaction [Recovering/Resolving]
  - Asthenia [Recovering/Resolving]

NARRATIVE: CASE EVENT DATE: 20200620
